FAERS Safety Report 8251785-8 (Version None)
Quarter: 2012Q2

REPORT INFORMATION
  Report Type: 
  Country: None (occurrence: None)
  Receive Date: 20120402
  Receipt Date: 20120328
  Transmission Date: 20120825
  Serious: Yes (Other)
  Sender: FDA-Public Use
  Company Number: CN-PFIZER INC-2012079839

PATIENT
  Age: 71 Year
  Sex: Male

DRUGS (13)
  1. ACETYLSALICYLIC ACID [Concomitant]
     Indication: VENTRICULAR EXTRASYSTOLES
  2. FOLIC ACID [Concomitant]
     Indication: CEREBRAL INFARCTION
     Dosage: 5 MG, 1X/DAY
     Route: 048
     Dates: start: 20111001
  3. FOLIC ACID [Concomitant]
     Indication: HYPERHOMOCYSTEINAEMIA
  4. PIRACETAM [Concomitant]
     Indication: VENTRICULAR EXTRASYSTOLES
  5. FOLIC ACID [Concomitant]
     Indication: VENTRICULAR EXTRASYSTOLES
  6. PIRACETAM [Concomitant]
     Indication: HYPERHOMOCYSTEINAEMIA
  7. ACETYLSALICYLIC ACID [Concomitant]
     Indication: HYPERHOMOCYSTEINAEMIA
  8. MECOBALAMIN [Concomitant]
     Indication: VENTRICULAR EXTRASYSTOLES
  9. MECOBALAMIN [Concomitant]
     Indication: CEREBRAL INFARCTION
     Dosage: 500 UG, 1X/DAY
     Route: 048
     Dates: start: 20111001
  10. MECOBALAMIN [Concomitant]
     Indication: HYPERHOMOCYSTEINAEMIA
  11. PIRACETAM [Concomitant]
     Indication: CEREBRAL INFARCTION
     Dosage: 250 ML, 1X/DAY
     Route: 042
     Dates: start: 20111001
  12. LIPITOR [Suspect]
     Indication: CAROTID ARTERIOSCLEROSIS
     Dosage: 10 MG, 1X/DAY
     Route: 048
     Dates: start: 20111021, end: 20111027
  13. ACETYLSALICYLIC ACID [Concomitant]
     Indication: CEREBRAL INFARCTION
     Dosage: 0.1 G, 1X/DAY
     Route: 048
     Dates: start: 20111001

REACTIONS (4)
  - URINE COLOUR ABNORMAL [None]
  - BLOOD CREATINE PHOSPHOKINASE INCREASED [None]
  - DEPRESSED LEVEL OF CONSCIOUSNESS [None]
  - BLOOD URINE PRESENT [None]
